FAERS Safety Report 14139595 (Version 4)
Quarter: 2018Q3

REPORT INFORMATION
  Report Type: Report from Study
  Country: AR (occurrence: AR)
  Receive Date: 20171029
  Receipt Date: 20180906
  Transmission Date: 20181010
  Serious: Yes (Other)
  Sender: FDA-Public Use
  Company Number: PHHY2017AR157275

PATIENT
  Age: 71 Year
  Sex: Male

DRUGS (3)
  1. COSENTYX [Suspect]
     Active Substance: SECUKINUMAB
     Indication: PSORIATIC ARTHROPATHY
     Dosage: 300 MG, QMO
     Route: 065
     Dates: start: 20171110, end: 201801
  2. COSENTYX [Suspect]
     Active Substance: SECUKINUMAB
     Indication: PSORIASIS
     Dosage: 300 MG, QW
     Route: 065
     Dates: start: 20170922, end: 20170929
  3. COSENTYX [Suspect]
     Active Substance: SECUKINUMAB
     Indication: SPONDYLITIS

REACTIONS (10)
  - Rash pustular [Unknown]
  - Influenza [Unknown]
  - Blood creatinine increased [Unknown]
  - Soft tissue infection [Not Recovered/Not Resolved]
  - Furuncle [Recovering/Resolving]
  - Inflammation [Unknown]
  - Skin lesion [Recovering/Resolving]
  - Red blood cell sedimentation rate abnormal [Unknown]
  - Erythema [Recovering/Resolving]
  - Skin exfoliation [Recovering/Resolving]

NARRATIVE: CASE EVENT DATE: 20171004
